FAERS Safety Report 16105581 (Version 2)
Quarter: 2019Q2

REPORT INFORMATION
  Report Type: Report from Study
  Country: FR (occurrence: FR)
  Receive Date: 20190322
  Receipt Date: 20190401
  Transmission Date: 20190711
  Serious: Yes (Hospitalization, Other)
  Sender: FDA-Public Use
  Company Number: FR-JNJFOC-20190316451

PATIENT
  Age: 60 Year
  Sex: Male
  Weight: 62 kg

DRUGS (7)
  1. OFLOCET [Concomitant]
     Active Substance: OFLOXACIN
     Indication: INFECTION
     Route: 065
     Dates: start: 20190307, end: 20190311
  2. OFLOCET [Concomitant]
     Active Substance: OFLOXACIN
     Indication: INFECTION
     Route: 065
  3. STELARA [Suspect]
     Active Substance: USTEKINUMAB
     Indication: PSORIASIS
     Route: 058
     Dates: start: 20180220
  4. BRODALUMAB [Suspect]
     Active Substance: BRODALUMAB
     Indication: PRODUCT USED FOR UNKNOWN INDICATION
     Route: 065
  5. STELARA [Suspect]
     Active Substance: USTEKINUMAB
     Indication: PSORIASIS
     Route: 058
     Dates: start: 20180320, end: 20181105
  6. NERISONE [Concomitant]
     Active Substance: DIFLUCORTOLONE VALERATE
     Indication: PSORIASIS
     Route: 065
     Dates: end: 20190311
  7. NERISONE [Concomitant]
     Active Substance: DIFLUCORTOLONE VALERATE
     Indication: PSORIASIS
     Route: 065

REACTIONS (2)
  - Urinary tract infection staphylococcal [Recovering/Resolving]
  - Balanoposthitis [Recovering/Resolving]

NARRATIVE: CASE EVENT DATE: 20181217
